FAERS Safety Report 4506878-5 (Version None)
Quarter: 2004Q4

REPORT INFORMATION
  Report Type: 
  Country: None (occurrence: None)
  Receive Date: 20041117
  Receipt Date: 20041104
  Transmission Date: 20050328
  Serious: Yes (Hospitalization, Other)
  Sender: FDA-Public Use
  Company Number: 2004061145

PATIENT
  Age: 40 Year
  Sex: Male
  Weight: 100 kg

DRUGS (5)
  1. LIPITOR [Suspect]
     Indication: HYPERCHOLESTEROLAEMIA
     Dosage: 5 MG (5 MG, 1 IN 1 D), ORAL
     Route: 048
     Dates: start: 20031010, end: 20040820
  2. ALLOPURINOL [Concomitant]
  3. CANDESARTAN CILEXETIL (CANDESARTAN CILEXETIL) [Concomitant]
  4. ETHYL ICOSAPENTATE (ETHYL ICOSAPENTATE) [Concomitant]
  5. PHENOBARBITAL TAB [Concomitant]

REACTIONS (10)
  - CEREBRAL INFARCTION [None]
  - COMA [None]
  - CONVULSION [None]
  - HAEMODIALYSIS [None]
  - HEMIPLEGIA [None]
  - MYOGLOBINURIA [None]
  - PYELONEPHRITIS [None]
  - RENAL FAILURE ACUTE [None]
  - RHABDOMYOLYSIS [None]
  - WHITE BLOOD CELL COUNT INCREASED [None]
